FAERS Safety Report 10231492 (Version 1)
Quarter: 2014Q2

REPORT INFORMATION
  Report Type: Spontaneous
  Country: US (occurrence: US)
  Receive Date: 20140611
  Receipt Date: 20140611
  Transmission Date: 20141212
  Serious: Yes (Other)
  Sender: FDA-Public Use
  Company Number: US-FRI-1000067945

PATIENT
  Age: 56 Year
  Sex: Female

DRUGS (1)
  1. FETZIMA [Suspect]
     Dosage: 40MG

REACTIONS (1)
  - Psychotic disorder [Unknown]
